FAERS Safety Report 17811150 (Version 1)
Quarter: 2020Q2

REPORT INFORMATION
  Report Type: Spontaneous
  Country: GB (occurrence: GB)
  Receive Date: 20200521
  Receipt Date: 20200521
  Transmission Date: 20200714
  Serious: Yes (Other)
  Sender: FDA-Public Use
  Company Number: GB-ACCORD-182676

PATIENT
  Age: 33 Year
  Sex: Female
  Weight: 96 kg

DRUGS (23)
  1. IVABRADINE/IVABRADINE HYDROCHLORIDE [Concomitant]
     Active Substance: IVABRADINE HYDROCHLORIDE
     Dates: start: 20200131
  2. OILATUM PLUS [Concomitant]
     Indication: ECZEMA
     Dosage: ADD ONE TO TWO CAPFULS TO BATH WATER
     Dates: start: 20200401
  3. OMEPRAZOLE. [Concomitant]
     Active Substance: OMEPRAZOLE
     Dates: start: 20200131
  4. MOMETASONE [Concomitant]
     Active Substance: MOMETASONE
     Dosage: APPLY THINLY AS DIRECTED
     Dates: start: 20200421
  5. SERTRALINE [Concomitant]
     Active Substance: SERTRALINE HYDROCHLORIDE
     Dates: start: 20200131
  6. DUPILUMAB [Concomitant]
     Active Substance: DUPILUMAB
     Dosage: 200MG/1.14ML
     Dates: start: 201901
  7. VENTOLIN [Concomitant]
     Active Substance: ALBUTEROL SULFATE
     Dosage: 1 TO 2 PUFFS UP TO FOUR TIMES DAILY AS REQUIRED. 100MICROGRAMS/DOSE
     Dates: start: 20200131
  8. FLUDROCORTISONE [Concomitant]
     Active Substance: FLUDROCORTISONE
     Dosage: TAKE 50MCG ( HALF A TABLET ) TWICE DAILY MDU BY?ENDOCRINOLOGY
     Dates: start: 20200131
  9. HYDROCORTISONE. [Concomitant]
     Active Substance: HYDROCORTISONE
     Indication: ADDISON^S DISEASE
     Dosage: 10MG IN THE MORNING, 5MG AT LUNCHTIME AND 5MG AT NIGHT
     Dates: start: 20200401
  10. METFORMIN [Concomitant]
     Active Substance: METFORMIN HYDROCHLORIDE
     Dosage: WITH EVENING MEAL
     Dates: start: 20200131
  11. DEXAMETHASONE. [Concomitant]
     Active Substance: DEXAMETHASONE
     Dosage: ONE DROP BOTH EYES , FOUR TIMES A DAY
     Dates: start: 20200221, end: 20200404
  12. HYDROCORTISONE. [Concomitant]
     Active Substance: HYDROCORTISONE
     Dosage: TO BE USED IF UNABLE TO TAKE ORAL HYDROCORTISONE
     Dates: start: 20200131
  13. CYCLIZINE [Concomitant]
     Active Substance: CYCLIZINE
     Dosage: ONE TO BE TAKEN UP TO THREE TIMES A DAY
     Dates: start: 20200131, end: 20200306
  14. CANESTEN [Concomitant]
     Active Substance: CLOTRIMAZOLE
     Dosage: APPLY THINLY, FOR MAXIMUM 2 WEEKS
     Dates: start: 20200206, end: 20200306
  15. CETRABEN [Concomitant]
     Active Substance: PARAFFIN
     Indication: ECZEMA
     Dosage: EMOLLIENT CREAM
     Dates: start: 20200401
  16. SYMBICORT [Concomitant]
     Active Substance: BUDESONIDE\FORMOTEROL FUMARATE DIHYDRATE
     Indication: ASTHMA
     Dates: start: 20200401
  17. MONOPOST [Concomitant]
     Active Substance: LATANOPROST
     Dosage: 50 MICROGRAM/ML. ONE DROP TO BE USED AT NIGHT IN THE AFFECTED EYE(S)
     Dates: start: 20200221, end: 20200404
  18. ACICLOVIR [Concomitant]
     Active Substance: ACYCLOVIR
     Dates: start: 20200131
  19. FEXOFENADINE [Concomitant]
     Active Substance: FEXOFENADINE HYDROCHLORIDE
     Dates: start: 20200131
  20. QUETIAPINE. [Suspect]
     Active Substance: QUETIAPINE
     Indication: DEPRESSION
     Dosage: AT NIGHT
     Dates: start: 20200401
  21. DERMOL [Concomitant]
     Active Substance: BENZALKONIUM CHLORIDE\CHLORHEXIDINE HYDROCHLORIDE\ISOPROPYL MYRISTATE\PARAFFIN
     Indication: ECZEMA
     Dosage: APPLY TO SKIN OR USE AS A SOAP SUBSTITUTE
     Dates: start: 20200401
  22. REFRESH CELLUVISC [Concomitant]
     Active Substance: CARBOXYMETHYLCELLULOSE SODIUM
     Dosage: AS DIRECTED BY HOSPITAL
     Dates: start: 20200221, end: 20200404
  23. CHLORAMPHENICOL [Concomitant]
     Active Substance: CHLORAMPHENICOL
     Dosage: IN AFFECTED EYE(S)
     Dates: start: 20200221, end: 20200404

REACTIONS (3)
  - Urticaria [Unknown]
  - Genital rash [Unknown]
  - Stevens-Johnson syndrome [Unknown]
